FAERS Safety Report 8870840 (Version 1)
Quarter: 2012Q4

REPORT INFORMATION
  Report Type: 
  Country: US (occurrence: US)
  Receive Date: 20121026
  Receipt Date: 20121026
  Transmission Date: 20130627
  Serious: No
  Sender: FDA-Public Use
  Company Number: US-AMGEN-USASP2012046618

PATIENT
  Age: 48 Year
  Sex: Male
  Weight: 86.17 kg

DRUGS (6)
  1. ENBREL [Suspect]
     Indication: PRODUCT USED FOR UNKNOWN INDICATION
     Dosage: 50 mg, qwk
     Route: 058
  2. LAMICTAL [Concomitant]
     Dosage: 150 mg, UNK
  3. VALIUM                             /00017001/ [Concomitant]
     Dosage: 5 mg, UNK
  4. VENLAFAXINE [Concomitant]
     Dosage: 150 mg, UNK
  5. TRAZODONE [Concomitant]
     Dosage: 50 mg, UNK
  6. FUROSEMIDE [Concomitant]
     Dosage: 40 mg, UNK

REACTIONS (2)
  - Pain [Unknown]
  - Joint swelling [Unknown]
